FAERS Safety Report 17388812 (Version 1)
Quarter: 2020Q1

REPORT INFORMATION
  Report Type: Spontaneous
  Country: FR (occurrence: FR)
  Receive Date: 20200206
  Receipt Date: 20200206
  Transmission Date: 20200409
  Serious: Yes (Death, Other)
  Sender: FDA-Public Use
  Company Number: FR-CELLTRION INC.-2020FR018916

PATIENT

DRUGS (2)
  1. RITUXIMAB (UNKNOWN) [Suspect]
     Active Substance: RITUXIMAB
     Indication: DIFFUSE LARGE B-CELL LYMPHOMA
     Dosage: UNK
     Route: 065
  2. 5-AZACYTIDINE [Suspect]
     Active Substance: AZACITIDINE
     Indication: DIFFUSE LARGE B-CELL LYMPHOMA
     Dosage: UNK
     Route: 065

REACTIONS (6)
  - Hypercalcaemia [Fatal]
  - Malignant neoplasm progression [Unknown]
  - Diffuse large B-cell lymphoma [Unknown]
  - Lymphadenopathy [Fatal]
  - Disease recurrence [Fatal]
  - Drug intolerance [Unknown]
